FAERS Safety Report 9546885 (Version 1)
Quarter: 2013Q2

REPORT INFORMATION
  Report Type: Spontaneous
  Country: US (occurrence: None)
  Receive Date: 20130606
  Receipt Date: 20130606
  Transmission Date: 20140414
  Serious: Yes (Hospitalization)
  Sender: FDA-Public Use
  Company Number: 2013PROUSA02745

PATIENT
  Age: 61 Year
  Sex: Male
  Weight: 121.56 kg

DRUGS (10)
  1. PROVENGE [Suspect]
     Indication: PROSTATE CANCER
     Dosage: SINGLE
     Route: 042
     Dates: start: 20130412, end: 20130412
  2. TOPROL (METOPROLOL SUCCINATE) TABLET [Concomitant]
  3. HYDRODIURIL (HYDROCHLOROTHIAZIDE) TABLET [Concomitant]
  4. BAYER ASPIRIN (ACETYLSALICYLIC ACID) TABLET [Concomitant]
  5. VITAMIN D3 (COLECALCIFEROL) CAPSULE [Concomitant]
  6. PRILOSEC (OMEPRAZOLE) CAPSULE [Concomitant]
  7. AFRIN (PSEUDOEPHEDRINE SULFATE) [Concomitant]
  8. VOLTAREN (DICLOFENAC SODIUM) 1% [Concomitant]
  9. FIRMAGON (DEGRELIX ACETATE) [Concomitant]
  10. AFRIN (PSEUDOEPHEDRINE SULFATE) [Concomitant]

REACTIONS (5)
  - Pyrexia [None]
  - Atrial fibrillation [None]
  - Wheezing [None]
  - Infection [None]
  - Chills [None]
